FAERS Safety Report 7778358-5 (Version None)
Quarter: 2011Q3

REPORT INFORMATION
  Report Type: 
  Country: None (occurrence: None)
  Receive Date: 20110926
  Receipt Date: 20110920
  Transmission Date: 20111222
  Serious: Yes (Hospitalization, Other)
  Sender: FDA-Public Use
  Company Number: PHHY2011CA29643

PATIENT
  Sex: Female

DRUGS (3)
  1. SANDOSTATIN LAR [Suspect]
     Indication: PANCREATIC CARCINOMA
     Dosage: 30 MG, EVERY 2 WEEKS
     Route: 030
     Dates: start: 20080801
  2. AFINITOR [Suspect]
     Dosage: 10 MG, EVERY DAY
     Route: 048
     Dates: start: 20110810, end: 20110824
  3. CHEMOTHERAPEUTICS [Concomitant]
     Route: 048

REACTIONS (13)
  - DIARRHOEA [None]
  - DYSPNOEA [None]
  - FATIGUE [None]
  - LOWER RESPIRATORY TRACT INFECTION [None]
  - MALAISE [None]
  - MUSCLE SPASMS [None]
  - ABDOMINAL DISTENSION [None]
  - HEPATOMEGALY [None]
  - EPISTAXIS [None]
  - STOMATITIS [None]
  - FLUSHING [None]
  - HAEMOGLOBIN DECREASED [None]
  - BLOOD PRESSURE INCREASED [None]
